FAERS Safety Report 8172739-6 (Version None)
Quarter: 2012Q1

REPORT INFORMATION
  Report Type: 
  Country: None (occurrence: None)
  Receive Date: 20120223
  Receipt Date: 20120207
  Transmission Date: 20120608
  Serious: Yes (Disabling)
  Sender: FDA-Public Use
  Company Number: TPA2012A00881

PATIENT
  Age: 77 Year
  Sex: Female

DRUGS (6)
  1. FEBURIC (FEBUXOSTAT) [Suspect]
     Indication: HYPERURICAEMIA
     Dosage: 10 MG (10 MG) PER ORAL
     Route: 048
     Dates: start: 20110521, end: 20110720
  2. OPALMON (LIMAPROST) [Concomitant]
  3. ALTAT (ROXATIDINE ACETATE HYDROCHLORIDE) [Concomitant]
  4. AMLODIPINE [Concomitant]
  5. PROHEPARUM (LIVER HYDROLYSATE) [Concomitant]
  6. ALOSENN (ACHILLEA MILLEFOLIUM, SENNA ALEXANDRINA LEAF, SENNA ALEXANDRI [Concomitant]

REACTIONS (3)
  - ASPARTATE AMINOTRANSFERASE INCREASED [None]
  - LIVER DISORDER [None]
  - ALANINE AMINOTRANSFERASE INCREASED [None]
